FAERS Safety Report 10398849 (Version 4)
Quarter: 2014Q4

REPORT INFORMATION
  Report Type: Spontaneous
  Country: US (occurrence: US)
  Receive Date: 20140821
  Receipt Date: 20141010
  Transmission Date: 20150528
  Serious: Yes (Other)
  Sender: FDA-Public Use
  Company Number: US-009507513-1408USA009319

PATIENT
  Age: 23 Year
  Sex: Female
  Weight: 62.86 kg

DRUGS (1)
  1. IMPLANON [Suspect]
     Active Substance: ETONOGESTREL
     Dosage: SINGLE ROD
     Route: 059
     Dates: start: 20120712

REACTIONS (4)
  - Medical device complication [Recovered/Resolved]
  - Abortion induced [Unknown]
  - Medical device complication [Not Recovered/Not Resolved]
  - Unintended pregnancy [Recovered/Resolved]

NARRATIVE: CASE EVENT DATE: 201405
